FAERS Safety Report 17911484 (Version 1)
Quarter: 2020Q2

REPORT INFORMATION
  Report Type: Spontaneous
  Country: US (occurrence: US)
  Receive Date: 20200618
  Receipt Date: 20200618
  Transmission Date: 20200714
  Serious: No
  Sender: FDA-Public Use
  Company Number: None

PATIENT
  Age: 58 Year
  Sex: Female
  Weight: 112.5 kg

DRUGS (1)
  1. BUPROPION 150MG TWICE DAILY [Suspect]
     Active Substance: BUPROPION
     Indication: MOOD ALTERED
     Route: 048

REACTIONS (3)
  - Rash [None]
  - Skin burning sensation [None]
  - Skin discolouration [None]

NARRATIVE: CASE EVENT DATE: 20200507
